FAERS Safety Report 8710054 (Version 2)
Quarter: 2015Q1

REPORT INFORMATION
  Report Type: Report from Study
  Country: US (occurrence: US)
  Receive Date: 20120806
  Receipt Date: 20150130
  Transmission Date: 20150721
  Serious: Yes (Other)
  Sender: FDA-Public Use
  Company Number: US-ROCHE-1095294

PATIENT
  Sex: Female
  Weight: 109.1 kg

DRUGS (13)
  1. ALLEGRA [Concomitant]
     Active Substance: FEXOFENADINE HYDROCHLORIDE
     Route: 065
  2. ALBUTEROL. [Concomitant]
     Active Substance: ALBUTEROL
  3. SOLU-MEDROL [Concomitant]
     Active Substance: METHYLPREDNISOLONE SODIUM SUCCINATE
     Route: 042
  4. XOLAIR [Suspect]
     Active Substance: OMALIZUMAB
     Indication: ASTHMA
     Route: 058
     Dates: start: 200503, end: 200508
  5. PREDNISONE. [Concomitant]
     Active Substance: PREDNISONE
     Route: 065
  6. PREDNISONE. [Concomitant]
     Active Substance: PREDNISONE
     Route: 065
  7. COMBIVENT [Concomitant]
     Active Substance: ALBUTEROL SULFATE\IPRATROPIUM BROMIDE
     Dosage: PRN
     Route: 065
  8. ADVAIR HFA [Concomitant]
     Active Substance: FLUTICASONE PROPIONATE\SALMETEROL XINAFOATE
     Dosage: 500/50
     Route: 065
  9. PREDNISONE. [Concomitant]
     Active Substance: PREDNISONE
     Route: 065
  10. SYNTHROID [Concomitant]
     Active Substance: LEVOTHYROXINE SODIUM
  11. NASONEX [Concomitant]
     Active Substance: MOMETASONE FUROATE
     Dosage: AS NEEDED WHEN SEVERE EVERY 4 HOURS.
     Route: 065
  12. SINGULAIR [Concomitant]
     Active Substance: MONTELUKAST SODIUM
     Dosage: EVERY NIGHT AT BED TIME
     Route: 065
  13. DUONEB [Concomitant]
     Active Substance: ALBUTEROL SULFATE\IPRATROPIUM BROMIDE
     Dosage: AS NEEDED
     Route: 065

REACTIONS (17)
  - Asthma [Unknown]
  - Malaise [Unknown]
  - Hypertension [Unknown]
  - Speech disorder [Unknown]
  - Dyspnoea [Unknown]
  - Weight increased [Unknown]
  - Middle insomnia [Unknown]
  - Contusion [Unknown]
  - Nasal congestion [Unknown]
  - Arthralgia [Unknown]
  - Mood swings [Unknown]
  - Wheezing [Unknown]
  - Sinusitis [Unknown]
  - Stress [Unknown]
  - Cough [Unknown]
  - Infection [Unknown]
  - Abdominal distension [Unknown]
